FAERS Safety Report 17185654 (Version 1)
Quarter: 2019Q4

REPORT INFORMATION
  Report Type: Other
  Country: US (occurrence: US)
  Receive Date: 20191220
  Receipt Date: 20191220
  Transmission Date: 20200122
  Serious: Yes (Hospitalization)
  Sender: FDA-Public Use
  Company Number: US-SERVIER-S19012998

PATIENT

DRUGS (12)
  1. TN UNSPECIFIED [CYCLOPHOSPHAMIDE] [Suspect]
     Active Substance: CYCLOPHOSPHAMIDE
     Indication: ACUTE LYMPHOCYTIC LEUKAEMIA
     Dosage: 2330 MG
     Route: 065
     Dates: start: 20190927, end: 20190927
  2. TN UNSPECIFIED [CYTARABINE] [Suspect]
     Active Substance: CYTARABINE
     Indication: ACUTE LYMPHOCYTIC LEUKAEMIA
     Dosage: 70 MG
     Route: 065
     Dates: start: 20190621, end: 20190621
  3. TN UNSPECIFIED [CYTARABINE] [Suspect]
     Active Substance: CYTARABINE
     Dosage: 1360 MG
     Route: 065
     Dates: start: 20190927, end: 20191007
  4. TN UNSPECIFIED [DAUNORUBICIN HYDROCHLORIDE] [Suspect]
     Active Substance: DAUNORUBICIN HYDROCHLORIDE
     Indication: ACUTE LYMPHOCYTIC LEUKAEMIA
     Dosage: 60 MG
     Route: 065
     Dates: start: 20190621, end: 20190621
  5. TN UNSPECIFIED [MERCAPTOPURINE] [Suspect]
     Active Substance: MERCAPTOPURINE
     Indication: ACUTE LYMPHOCYTIC LEUKAEMIA
     Dosage: 2100 MG
     Route: 065
     Dates: start: 20190927, end: 20191007
  6. ONCASPAR [Suspect]
     Active Substance: PEGASPARGASE
     Indication: ACUTE LYMPHOCYTIC LEUKAEMIA
     Dosage: 3750 IU
     Route: 065
     Dates: start: 20190624, end: 20190624
  7. TN UNSPECIFIED [METHOTREXATE SODIUM] [Suspect]
     Active Substance: METHOTREXATE SODIUM
     Indication: ACUTE LYMPHOCYTIC LEUKAEMIA
     Dosage: 45 MG
     Route: 037
     Dates: start: 20191001, end: 20191018
  8. TN UNSPECIFIED [VINCRISTINE SULFATE] [Suspect]
     Active Substance: VINCRISTINE SULFATE
     Indication: ACUTE LYMPHOCYTIC LEUKAEMIA
     Dosage: 2 MG
     Route: 065
     Dates: start: 20190621, end: 20190621
  9. TN UNSPECIFIED [VINCRISTINE SULFATE] [Suspect]
     Active Substance: VINCRISTINE SULFATE
     Dosage: 4 MG
     Route: 065
     Dates: start: 20191010, end: 20191018
  10. ONCASPAR [Suspect]
     Active Substance: PEGASPARGASE
     Dosage: 3750 IU
     Route: 065
     Dates: start: 20191011, end: 20191011
  11. TN UNSPECIFIED [DEXAMETHASONE SODIUM PHOSPHATE] [Suspect]
     Active Substance: DEXAMETHASONE SODIUM PHOSPHATE
     Indication: ACUTE LYMPHOCYTIC LEUKAEMIA
     Dosage: 144 MG
     Route: 065
     Dates: start: 20190621, end: 20190626
  12. TN UNSPECIFIED [RITUXIMAB] [Suspect]
     Active Substance: RITUXIMAB
     Indication: ACUTE LYMPHOCYTIC LEUKAEMIA
     Dosage: 1800 MG
     Route: 065
     Dates: start: 20190927, end: 20191004

REACTIONS (3)
  - Sepsis [Recovered/Resolved]
  - Hypoxia [Recovered/Resolved]
  - Non-cardiac chest pain [Recovered/Resolved]

NARRATIVE: CASE EVENT DATE: 20190625
